FAERS Safety Report 17823630 (Version 1)
Quarter: 2020Q2

REPORT INFORMATION
  Report Type: Spontaneous
  Country: US (occurrence: US)
  Receive Date: 20200526
  Receipt Date: 20200526
  Transmission Date: 20200714
  Serious: No
  Sender: FDA-Public Use
  Company Number: US-PFIZER INC-2020203555

PATIENT
  Age: 61 Year
  Sex: Male
  Weight: 95.71 kg

DRUGS (2)
  1. SILDENAFIL CITRATE. [Suspect]
     Active Substance: SILDENAFIL CITRATE
     Dosage: 100 MG (100 MG TABLET ONCE A WEEK OR ONCE EVERY OTHER WEEK)
  2. SILDENAFIL CITRATE. [Suspect]
     Active Substance: SILDENAFIL CITRATE
     Indication: ERECTILE DYSFUNCTION
     Dosage: 100 MG, WEEKLY (100 MG TABLET ONCE A WEEK OR ONCE EVERY OTHER WEEK)

REACTIONS (1)
  - Drug ineffective [Unknown]
